FAERS Safety Report 4414338-5 (Version None)
Quarter: 2004Q3

REPORT INFORMATION
  Report Type: 
  Country: None (occurrence: None)
  Receive Date: 20040701
  Receipt Date: 20040128
  Transmission Date: 20050211
  Serious: Yes (Other)
  Sender: FDA-Public Use
  Company Number: VISP-PR-0401S-0027(0)

PATIENT
  Age: 59 Year
  Sex: Male
  Weight: 113.3993 kg

DRUGS (1)
  1. VISIPAQUE [Suspect]
     Indication: DRUG USE FOR UNKNOWN INDICATION
     Dosage: 75 ML, SINGLE DOSE; I.A.
     Route: 014
     Dates: start: 20040127, end: 20040127

REACTIONS (2)
  - BLOOD PRESSURE DECREASED [None]
  - MUSCLE CRAMP [None]
